FAERS Safety Report 6298640-0 (Version None)
Quarter: 2009Q3

REPORT INFORMATION
  Report Type: 
  Country: None (occurrence: None)
  Receive Date: 20090804
  Receipt Date: 20090527
  Transmission Date: 20100115
  Serious: Yes (Other)
  Sender: FDA-Public Use
  Company Number: IMP_04430_2009

PATIENT
  Age: 11 Year
  Sex: Male

DRUGS (1)
  1. CLARITIN-D [Suspect]
     Indication: DRUG USE FOR UNKNOWN INDICATION
     Dosage: (2 DF, TOOK 2 CLARITIN D-12, 30 MINUTES APART)
     Dates: start: 20090525

REACTIONS (4)
  - DIZZINESS [None]
  - HEADACHE [None]
  - PALPITATIONS [None]
  - SOMNOLENCE [None]
